FAERS Safety Report 17286350 (Version 1)
Quarter: 2020Q1

REPORT INFORMATION
  Report Type: Spontaneous
  Country: UA (occurrence: UA)
  Receive Date: 20200118
  Receipt Date: 20200118
  Transmission Date: 20200409
  Serious: Yes (Death, Hospitalization)
  Sender: FDA-Public Use
  Company Number: NVSC2020UA009904

PATIENT
  Age: 53 Year
  Sex: Female

DRUGS (19)
  1. VIKASOL [Suspect]
     Active Substance: MENADIONE
     Indication: COAGULOPATHY
     Dosage: 4 ML, QD
     Route: 030
     Dates: start: 20180927
  2. GLUCOSE [Concomitant]
     Active Substance: DEXTROSE
     Indication: DETOXIFICATION
  3. SODIUM CHLORIDE. [Concomitant]
     Active Substance: SODIUM CHLORIDE
     Indication: HEPATITIS A
     Route: 065
  4. OMEZ [Concomitant]
     Active Substance: OMEPRAZOLE
     Indication: PRODUCT USED FOR UNKNOWN INDICATION
     Dosage: UNK
     Route: 048
     Dates: start: 20180928
  5. ACICLOVIR [Suspect]
     Active Substance: ACYCLOVIR
     Indication: PRODUCT USED FOR UNKNOWN INDICATION
     Dosage: UNK
     Route: 048
     Dates: start: 20180917
  6. ATOXIL [Concomitant]
     Indication: PRODUCT USED FOR UNKNOWN INDICATION
     Dosage: UNK, TID (1 SACHET)
     Route: 048
  7. DEXAMETHASONE. [Concomitant]
     Active Substance: DEXAMETHASONE
     Indication: PRODUCT USED FOR UNKNOWN INDICATION
     Dosage: 12 MG
     Route: 065
     Dates: start: 20180928
  8. ASPIRIN. [Suspect]
     Active Substance: ASPIRIN
     Indication: PRODUCT USED FOR UNKNOWN INDICATION
     Route: 065
  9. GLUCOSE [Concomitant]
     Active Substance: DEXTROSE
     Indication: HEPATITIS A
     Route: 065
  10. ASCORBIC ACID. [Concomitant]
     Active Substance: ASCORBIC ACID
     Indication: HEPATITIS A
     Route: 065
  11. ETAMSYLATE [Suspect]
     Active Substance: ETHAMSYLATE
     Indication: COAGULOPATHY
     Dosage: 4 ML, QD
     Route: 030
     Dates: start: 20180927
  12. REOSORBILACT [Concomitant]
     Active Substance: CALCIUM CHLORIDE\MAGNESIUM CHLORIDE\POTASSIUM CHLORIDE\SODIUM CHLORIDE\SODIUM LACTATE\SORBITOL
     Indication: HEPATITIS A
     Route: 065
  13. SODIUM CHLORIDE. [Concomitant]
     Active Substance: SODIUM CHLORIDE
     Indication: DETOXIFICATION
  14. GLUTARGIN [Concomitant]
     Indication: DETOXIFICATION
  15. PARACETAMOL [Suspect]
     Active Substance: ACETAMINOPHEN
     Indication: PRODUCT USED FOR UNKNOWN INDICATION
     Route: 065
  16. ESSENTIALE [Concomitant]
     Indication: PRODUCT USED FOR UNKNOWN INDICATION
     Route: 048
  17. REOSORBILACT [Concomitant]
     Active Substance: CALCIUM CHLORIDE\MAGNESIUM CHLORIDE\POTASSIUM CHLORIDE\SODIUM CHLORIDE\SODIUM LACTATE\SORBITOL
     Indication: DETOXIFICATION
  18. ASCORBIC ACID. [Concomitant]
     Active Substance: ASCORBIC ACID
     Indication: DETOXIFICATION
  19. GLUTARGIN [Concomitant]
     Indication: HEPATITIS A
     Route: 065

REACTIONS (7)
  - General physical health deterioration [Fatal]
  - Haemodynamic test abnormal [Fatal]
  - Abnormal behaviour [Fatal]
  - Altered state of consciousness [Fatal]
  - Stupor [Fatal]
  - Therapy non-responder [Not Recovered/Not Resolved]
  - Encephalopathy [Fatal]

NARRATIVE: CASE EVENT DATE: 20180930
